FAERS Safety Report 4270636-X (Version None)
Quarter: 2004Q1

REPORT INFORMATION
  Report Type: 
  Country: None (occurrence: None)
  Receive Date: 20040114
  Receipt Date: 20031219
  Transmission Date: 20041129
  Serious: Yes (Other)
  Sender: FDA-Public Use
  Company Number: PHNU2003DE04462

PATIENT
  Age: 57 Year
  Sex: Male

DRUGS (7)
  1. SANDIMMUNE [Suspect]
     Indication: HEART TRANSPLANT
     Dates: start: 20010101
  2. CELLCEPT [Concomitant]
  3. PREDNISOLONE [Concomitant]
     Dosage: 5 MG, QD
  4. ZIMOVANE [Concomitant]
  5. ALLOPURINOL [Concomitant]
  6. METOPROLOL SUCCINATE [Concomitant]
  7. OMIX [Concomitant]

REACTIONS (7)
  - CONDITION AGGRAVATED [None]
  - HERPES ZOSTER [None]
  - HYPOAESTHESIA [None]
  - MUSCULAR WEAKNESS [None]
  - POLYNEUROPATHY [None]
  - PRURITUS [None]
  - SKIN REACTION [None]
